FAERS Safety Report 12548043 (Version 1)
Quarter: 2016Q3

REPORT INFORMATION
  Report Type: Spontaneous
  Country: US (occurrence: None)
  Receive Date: 20160711
  Receipt Date: 20160711
  Transmission Date: 20161109
  Serious: Yes (Hospitalization)
  Sender: FDA-Public Use
  Company Number: None

PATIENT
  Age: 63 Year
  Sex: Female
  Weight: 57.61 kg

DRUGS (1)
  1. XARELTO [Suspect]
     Active Substance: RIVAROXABAN
     Indication: ATRIAL FIBRILLATION
     Route: 048
     Dates: start: 20160621

REACTIONS (5)
  - Weight increased [None]
  - Abdominal distension [None]
  - Dyspnoea [None]
  - Pulmonary congestion [None]
  - Cough [None]

NARRATIVE: CASE EVENT DATE: 20160707
